FAERS Safety Report 13119946 (Version 2)
Quarter: 2017Q1

REPORT INFORMATION
  Report Type: Report from Study
  Country: US (occurrence: US)
  Receive Date: 20170117
  Receipt Date: 20170123
  Transmission Date: 20170428
  Serious: Yes (Other)
  Sender: FDA-Public Use
  Company Number: US-GILEAD-2017-0253404

PATIENT
  Age: 32 Year
  Sex: Female

DRUGS (2)
  1. REMODULIN [Concomitant]
     Active Substance: TREPROSTINIL
  2. AMBRISENTAN [Suspect]
     Active Substance: AMBRISENTAN
     Indication: PRODUCT USED FOR UNKNOWN INDICATION
     Dosage: 10 MG, QD
     Route: 065

REACTIONS (7)
  - Feeling hot [Unknown]
  - Increased appetite [Unknown]
  - Tremor [Unknown]
  - Anal incontinence [Unknown]
  - Syncope [Unknown]
  - Pneumonia [Unknown]
  - Vomiting [Unknown]

NARRATIVE: CASE EVENT DATE: 20170112
